FAERS Safety Report 9633592 (Version 1)
Quarter: 2013Q4

REPORT INFORMATION
  Report Type: Spontaneous
  Country: GB (occurrence: None)
  Receive Date: 20131017
  Receipt Date: 20131017
  Transmission Date: 20140711
  Serious: Yes (Life-Threatening)
  Sender: FDA-Public Use
  Company Number: COL_14498_2013

PATIENT
  Age: 65 Year
  Sex: Male

DRUGS (7)
  1. CHLORHEXIDINE [Suspect]
     Indication: PRODUCT USED FOR UNKNOWN INDICATION
     Route: 061
     Dates: start: 201209, end: 201209
  2. ATRACURIUM [Suspect]
     Indication: INDUCTION OF ANAESTHESIA
     Route: 042
     Dates: start: 201209, end: 201209
  3. FENTANYL CITRATE [Suspect]
     Indication: INDUCTION OF ANAESTHESIA
     Route: 042
     Dates: start: 201209, end: 201209
  4. FLUCLOXACILLIN [Suspect]
     Indication: POSTOPERATIVE CARE
     Route: 042
     Dates: start: 201209, end: 201209
  5. GENTAMICIN [Suspect]
     Indication: POSTOPERATIVE CARE
     Route: 042
     Dates: start: 201209, end: 201209
  6. MORPHINE [Suspect]
     Indication: PRODUCT USED FOR UNKNOWN INDICATION
  7. PROPOFOL (PROPOFOL) [Suspect]
     Indication: INDUCTION OF ANAESTHESIA
     Route: 042
     Dates: start: 201209, end: 201209

REACTIONS (2)
  - Anaphylactic reaction [None]
  - Immunology test abnormal [None]
